FAERS Safety Report 12706238 (Version 1)
Quarter: 2016Q3

REPORT INFORMATION
  Report Type: Report from Study
  Country: FR (occurrence: FR)
  Receive Date: 20160901
  Receipt Date: 20160901
  Transmission Date: 20161109
  Serious: Yes (Hospitalization, Other)
  Sender: FDA-Public Use
  Company Number: FR-ROCHE-1358241

PATIENT
  Age: 65 Year
  Sex: Male

DRUGS (4)
  1. RITUXIMAB [Suspect]
     Active Substance: RITUXIMAB
     Indication: RHEUMATOID ARTHRITIS
     Dosage: ON 15/JUL/2010 (1 GM TWICE, D1), ON 29/JUL/2010 (1G, D15). ON 13/JAN/2011 (1 GM TWICE, D1), ON 27/JA
     Route: 042
     Dates: start: 20090108, end: 20130218
  2. CORTANCYL [Concomitant]
     Active Substance: PREDNISONE
     Route: 065
  3. METHOTREXATE. [Concomitant]
     Active Substance: METHOTREXATE
     Route: 065
  4. ORENCIA [Concomitant]
     Active Substance: ABATACEPT

REACTIONS (7)
  - Thrombosis [Recovered/Resolved]
  - Cytomegalovirus colitis [Not Recovered/Not Resolved]
  - Bladder neoplasm [Unknown]
  - Osteoporosis [Not Recovered/Not Resolved]
  - Dermatophytosis [Recovered/Resolved]
  - Acquired hydrocele [Not Recovered/Not Resolved]
  - Melaena [Unknown]

NARRATIVE: CASE EVENT DATE: 201010
